FAERS Safety Report 11972791 (Version 3)
Quarter: 2016Q1

REPORT INFORMATION
  Report Type: Spontaneous
  Country: US (occurrence: US)
  Receive Date: 20160128
  Receipt Date: 20160318
  Transmission Date: 20160526
  Serious: No
  Sender: FDA-Public Use
  Company Number: US-009507513-1601USA010745

PATIENT
  Sex: Female

DRUGS (1)
  1. NEXPLANON [Suspect]
     Active Substance: ETONOGESTREL
     Dosage: UNK
     Route: 059
     Dates: start: 20151207, end: 20160210

REACTIONS (4)
  - Implant site pain [Unknown]
  - Implant site erosion [Unknown]
  - Device expulsion [Unknown]
  - Implant site erythema [Unknown]
